FAERS Safety Report 14328756 (Version 1)
Quarter: 2017Q4

REPORT INFORMATION
  Report Type: Spontaneous
  Country: AU (occurrence: AU)
  Receive Date: 20171227
  Receipt Date: 20171227
  Transmission Date: 20180321
  Serious: Yes (Hospitalization)
  Sender: FDA-Public Use
  Company Number: AU-BAYER-2017-246645

PATIENT
  Age: 64 Year
  Sex: Male

DRUGS (4)
  1. HEPARIN [Interacting]
     Active Substance: HEPARIN SODIUM
     Dosage: UNK
  2. CLOPIDOGREL [Interacting]
     Active Substance: CLOPIDOGREL BISULFATE
     Dosage: LOADING DOSE
  3. ACETYLSALICYLIC ACID({=100 MG) [Suspect]
     Active Substance: ASPIRIN
     Indication: ANTICOAGULANT THERAPY
     Dosage: LOADING DOSE
  4. HEPARIN [Interacting]
     Active Substance: HEPARIN SODIUM
     Dosage: 2000 IU, UNK
     Route: 013

REACTIONS (4)
  - Labelled drug-drug interaction medication error [None]
  - Compartment syndrome [Recovered/Resolved]
  - Post procedural haematoma [Recovered/Resolved]
  - Drug administration error [None]
